FAERS Safety Report 9006137 (Version 7)
Quarter: 2014Q1

REPORT INFORMATION
  Report Type: Report from Study
  Country: CA (occurrence: CA)
  Receive Date: 20130109
  Receipt Date: 20140307
  Transmission Date: 20141002
  Serious: No
  Sender: FDA-Public Use
  Company Number: PHHY2012CA123290

PATIENT
  Sex: Female

DRUGS (5)
  1. TASIGNA [Suspect]
     Indication: CHRONIC MYELOID LEUKAEMIA
     Dosage: 400 MG, BID
     Route: 048
     Dates: start: 20100806
  2. ANTIHYPERTENSIVE DRUGS [Concomitant]
     Indication: HYPERTENSION
  3. DIOVAN [Concomitant]
  4. DETROL [Concomitant]
  5. PARIET [Concomitant]

REACTIONS (15)
  - Peripheral coldness [Unknown]
  - Sinusitis [Not Recovered/Not Resolved]
  - Nasopharyngitis [Not Recovered/Not Resolved]
  - Musculoskeletal pain [Unknown]
  - Breast pain [Unknown]
  - Pain in extremity [Unknown]
  - Local swelling [Unknown]
  - Hypoaesthesia [Not Recovered/Not Resolved]
  - Paraesthesia [Not Recovered/Not Resolved]
  - Initial insomnia [Unknown]
  - Headache [Unknown]
  - Dizziness [Unknown]
  - Malaise [Unknown]
  - Hypertension [Unknown]
  - Pruritus generalised [Unknown]
